FAERS Safety Report 7357584-3 (Version None)
Quarter: 2011Q1

REPORT INFORMATION
  Report Type: 
  Country: None (occurrence: None)
  Receive Date: 20110309
  Receipt Date: 20110221
  Transmission Date: 20110831
  Serious: Yes (Hospitalization, Other)
  Sender: FDA-Public Use
  Company Number: 2011MA001595

PATIENT
  Age: 5 Year
  Sex: Male
  Weight: 16 kg

DRUGS (1)
  1. PHENOBARBITAL ELIXIR USP (ALPHARMA) (PHENOBARBITAL) [Suspect]
     Indication: CONVULSION
     Dosage: 5 MG/KG;OD

REACTIONS (21)
  - STEVENS-JOHNSON SYNDROME [None]
  - TOOTH LOSS [None]
  - ABDOMINAL PAIN UPPER [None]
  - ALANINE AMINOTRANSFERASE INCREASED [None]
  - PROTHROMBIN TIME PROLONGED [None]
  - CONFUSIONAL STATE [None]
  - KAWASAKI'S DISEASE [None]
  - ESCHERICHIA TEST POSITIVE [None]
  - TACHYCARDIA [None]
  - TOXIC EPIDERMAL NECROLYSIS [None]
  - ACINETOBACTER TEST POSITIVE [None]
  - STAPHYLOCOCCAL SEPSIS [None]
  - ASPARTATE AMINOTRANSFERASE INCREASED [None]
  - GENERAL PHYSICAL HEALTH DETERIORATION [None]
  - CHEST X-RAY ABNORMAL [None]
  - DISORIENTATION [None]
  - PHARYNGITIS [None]
  - LYMPHADENOPATHY [None]
  - BLOOD PRESSURE DECREASED [None]
  - SOMNOLENCE [None]
  - DIARRHOEA [None]
